FAERS Safety Report 5119261-9 (Version None)
Quarter: 2006Q4

REPORT INFORMATION
  Report Type: 
  Country: None (occurrence: None)
  Receive Date: 20061003
  Receipt Date: 20060612
  Transmission Date: 20070319
  Serious: Yes (Death, Other)
  Sender: FDA-Public Use
  Company Number: US-BAYER-200614095BWH

PATIENT
  Age: 91 Year
  Sex: Male

DRUGS (13)
  1. NEXAVAR [Suspect]
     Indication: RENAL CELL CARCINOMA STAGE UNSPECIFIED
     Dosage: AS USED: 400 MG  UNIT DOSE: 200 MG
     Route: 048
     Dates: start: 20060101, end: 20060528
  2. NEXAVAR [Suspect]
     Dosage: TOTAL DAILY DOSE: 800 MG  UNIT DOSE: 200 MG
     Route: 048
     Dates: start: 20060411, end: 20060101
  3. OXYCODONE HCL [Concomitant]
     Dosage: TOTAL DAILY DOSE: 20 MG
     Route: 048
  4. ARANESP [Concomitant]
     Route: 058
  5. ALLOPURINOL [Concomitant]
  6. LIDOCAINE [Concomitant]
  7. VITAMIN E [Concomitant]
  8. LEXAPRO [Concomitant]
  9. COLACE [Concomitant]
     Indication: CONSTIPATION
  10. CALCIUM ACETATE [Concomitant]
     Dosage: TOTAL DAILY DOSE: 4002 MG
  11. CARDURA [Concomitant]
  12. FELODIPINE [Concomitant]
  13. FLOMAX [Concomitant]

REACTIONS (19)
  - ANOREXIA [None]
  - ASTHENIA [None]
  - BACK PAIN [None]
  - CHEST DISCOMFORT [None]
  - COLD SWEAT [None]
  - DEHYDRATION [None]
  - DISEASE PROGRESSION [None]
  - DIZZINESS [None]
  - DYSPEPSIA [None]
  - DYSPNOEA [None]
  - FATIGUE [None]
  - LETHARGY [None]
  - NAUSEA [None]
  - PAIN IN EXTREMITY [None]
  - RENAL CELL CARCINOMA STAGE UNSPECIFIED [None]
  - SPEECH DISORDER [None]
  - TERMINAL STATE [None]
  - TRANSIENT ISCHAEMIC ATTACK [None]
  - VOMITING [None]
